FAERS Safety Report 16400262 (Version 1)
Quarter: 2019Q2

REPORT INFORMATION
  Report Type: Spontaneous
  Country: US (occurrence: US)
  Receive Date: 20190606
  Receipt Date: 20190606
  Transmission Date: 20190711
  Serious: No
  Sender: FDA-Public Use
  Company Number: US-ALLERGAN-1832420US

PATIENT

DRUGS (2)
  1. KYBELLA [Suspect]
     Active Substance: DEOXYCHOLIC ACID
     Dosage: 1 ML, SINGLE
     Route: 023
  2. KYBELLA [Suspect]
     Active Substance: DEOXYCHOLIC ACID
     Indication: PRODUCT USED FOR UNKNOWN INDICATION
     Dosage: 1 ML, SINGLE
     Route: 023

REACTIONS (4)
  - Incorrect route of product administration [Unknown]
  - Injection site erythema [Unknown]
  - Product administered at inappropriate site [Unknown]
  - Injection site pain [Unknown]
